FAERS Safety Report 8560603-X (Version None)
Quarter: 2012Q3

REPORT INFORMATION
  Report Type: 
  Country: None (occurrence: None)
  Receive Date: 20120802
  Receipt Date: 20120720
  Transmission Date: 20120928
  Serious: Yes (Hospitalization, Other)
  Sender: FDA-Public Use
  Company Number: JP-009507513-2012SP036333

PATIENT

DRUGS (21)
  1. ANTIVIRAL (UNSPECIFIED) [Suspect]
     Dosage: 1000 MG, QD
     Route: 048
     Dates: start: 20120525
  2. LIVALO [Concomitant]
     Route: 048
  3. LIVALO [Concomitant]
     Indication: HYPERLIPIDAEMIA
     Dosage: FORMULATION: POR
     Route: 048
  4. RABEPRAZOLE SODIUM [Concomitant]
     Indication: GASTROOESOPHAGEAL REFLUX DISEASE
     Dosage: FORMULATION: POR
     Route: 048
  5. NORVASC [Concomitant]
     Indication: HYPERTENSION
     Dosage: FORMULATION: POR  AMLODIPINE BESILATE
     Route: 048
  6. SODIUM FERROUS CITRATE [Concomitant]
     Indication: IRON DEFICIENCY ANAEMIA
     Dosage: FORMULATION: POR
     Route: 048
  7. FEROTYM [Concomitant]
     Indication: IRON DEFICIENCY ANAEMIA
     Route: 048
  8. REBETOL [Suspect]
     Dosage: 200 MG, QD
     Route: 048
     Dates: start: 20120511
  9. CLARITIN REDITABS [Concomitant]
     Route: 048
  10. NORVASC [Concomitant]
     Route: 048
  11. EPADEL [Concomitant]
     Indication: HYPERLIPIDAEMIA
     Dosage: FORMULATION: POR
     Route: 048
  12. TELAVIC [Suspect]
     Indication: HEPATITIS C
     Route: 048
     Dates: start: 20120417, end: 20120524
  13. RABEPRAZOLE SODIUM [Concomitant]
     Route: 048
  14. EPADEL S [Concomitant]
     Indication: HYPERLIPIDAEMIA
     Route: 048
  15. TAMSULOSIN HYDROCHLORIDE [Concomitant]
     Indication: HYPERTENSION
     Dosage: FORMULATION: POR, TRADE NAME: UNKNOWN
     Route: 048
  16. TELAVIC [Suspect]
     Route: 048
     Dates: start: 20120525
  17. TAMSULOSIN HYDROCHLORIDE [Concomitant]
     Route: 048
  18. PEG-INTRON [Suspect]
     Indication: HEPATITIS C
     Dosage: 1.5MCG/KG/WEEK
     Route: 058
     Dates: start: 20120417
  19. REBETOL [Suspect]
     Indication: HEPATITIS C
     Dosage: 600 MG, QD
     Route: 048
     Dates: start: 20120417, end: 20120510
  20. ANTIVIRAL (UNSPECIFIED) [Suspect]
     Indication: HEPATITIS C
     Dosage: 1500 MG, QD
     Route: 048
     Dates: start: 20120417, end: 20120524
  21. CLARITIN REDITABS [Concomitant]
     Indication: PROPHYLAXIS
     Dosage: 10 MG, QD
     Route: 048

REACTIONS (3)
  - ANAEMIA [None]
  - DRUG ERUPTION [None]
  - PLATELET COUNT DECREASED [None]
